FAERS Safety Report 8079847-9 (Version None)
Quarter: 2012Q1

REPORT INFORMATION
  Report Type: 
  Country: None (occurrence: None)
  Receive Date: 20120128
  Receipt Date: 20110830
  Transmission Date: 20120608
  Serious: No
  Sender: FDA-Public Use
  Company Number: US-ABBOTT-11P-163-0850648-00

PATIENT
  Sex: Female

DRUGS (6)
  1. LEVOTHYROXINE SODIUM [Concomitant]
     Indication: HYPOTHYROIDISM
  2. UNKNOWN MEDICATION [Concomitant]
     Indication: BIPOLAR DISORDER
  3. DEXILANT [Concomitant]
     Indication: GASTROOESOPHAGEAL REFLUX DISEASE
     Dates: start: 20110701
  4. HUMIRA [Suspect]
     Indication: ANKYLOSING SPONDYLITIS
     Route: 058
     Dates: start: 20110802
  5. IMURAN [Concomitant]
     Indication: ANKYLOSING SPONDYLITIS
  6. UNKNOWN HORMONE [Concomitant]
     Indication: MENOPAUSE

REACTIONS (1)
  - URINARY TRACT INFECTION [None]
